FAERS Safety Report 4416617-4 (Version None)
Quarter: 2004Q3

REPORT INFORMATION
  Report Type: 
  Country: None (occurrence: None)
  Receive Date: 20040802
  Receipt Date: 20040727
  Transmission Date: 20050211
  Serious: Yes (Death)
  Sender: FDA-Public Use
  Company Number: US-JNJFOC-20040707583

PATIENT
  Age: 26 Year
  Sex: Male

DRUGS (1)
  1. SPORANOX [Suspect]
     Indication: HISTOPLASMOSIS
     Dosage: 100 MG, 4 IN 24  HOUR, ORAL
     Route: 048
     Dates: start: 20040601, end: 20040701

REACTIONS (1)
  - DEATH [None]
